FAERS Safety Report 13774891 (Version 1)
Quarter: 2017Q3

REPORT INFORMATION
  Report Type: Spontaneous
  Country: JP (occurrence: JP)
  Receive Date: 20170720
  Receipt Date: 20170720
  Transmission Date: 20171127
  Serious: Yes (Other)
  Sender: FDA-Public Use
  Company Number: JP-HQ SPECIALTY-JP-2017INT000239

PATIENT
  Age: 78 Year
  Sex: Female

DRUGS (2)
  1. DOCETAXEL. [Suspect]
     Active Substance: DOCETAXEL
     Indication: LIP AND/OR ORAL CAVITY CANCER
     Dosage: 10 MG/M^2/WEEK, 2 WEEKS
     Route: 013
  2. CISPLATIN. [Suspect]
     Active Substance: CISPLATIN
     Indication: LIP AND/OR ORAL CAVITY CANCER
     Dosage: 5 MG/M^2/DAY, 9 WEEKS
     Route: 013

REACTIONS (1)
  - Facial paralysis [Recovered/Resolved]
